FAERS Safety Report 16601950 (Version 1)
Quarter: 2019Q3

REPORT INFORMATION
  Report Type: Report from Study
  Country: US (occurrence: US)
  Receive Date: 20190719
  Receipt Date: 20190719
  Transmission Date: 20191004
  Serious: Yes (Hospitalization)
  Sender: FDA-Public Use
  Company Number: US-AGIOS-1905US01197

PATIENT

DRUGS (3)
  1. RESVERATROL [Concomitant]
     Active Substance: DIETARY SUPPLEMENT\RESVERATROL
     Indication: PRODUCT USED FOR UNKNOWN INDICATION
  2. TIBSOVO [Suspect]
     Active Substance: IVOSIDENIB
     Indication: OLIGODENDROGLIOMA
     Dosage: 250 MILLIGRAM, 2 TABLETS (500MG), QD
     Dates: start: 20190228
  3. MANGOSTAN PLUS [Concomitant]
     Indication: ANTIOXIDANT THERAPY

REACTIONS (2)
  - Drug interaction [Unknown]
  - Off label use [Unknown]

NARRATIVE: CASE EVENT DATE: 20190228
